FAERS Safety Report 18212400 (Version 1)
Quarter: 2020Q3

REPORT INFORMATION
  Report Type: Spontaneous
  Country: DE (occurrence: DE)
  Receive Date: 20200831
  Receipt Date: 20200831
  Transmission Date: 20201103
  Serious: Yes (Other)
  Sender: FDA-Public Use
  Company Number: DE-TORRENT-00018313

PATIENT
  Age: 1 Day
  Sex: Female
  Weight: 3 kg

DRUGS (5)
  1. SALBUTAMOL [Concomitant]
     Active Substance: ALBUTEROL
     Indication: ASTHMA
     Dosage: ONLY IF NECESSARY
     Route: 064
  2. UTROGEST [Concomitant]
     Active Substance: PROGESTERONE
     Indication: LUTEINISING HORMONE DEFICIENCY
     Dosage: UNKNOWN
     Route: 064
  3. SERTRALINE [Suspect]
     Active Substance: SERTRALINE HYDROCHLORIDE
     Indication: OBSESSIVE-COMPULSIVE DISORDER
     Dosage: 50 [MG/D ]
     Route: 064
     Dates: start: 20190228, end: 20191113
  4. FOSTER [Concomitant]
     Active Substance: BECLOMETHASONE\FORMOTEROL
     Indication: ASTHMA
     Dosage: VERY SELDOM USED DURING PREGNANCY
     Route: 064
  5. MIRTAZAPINE. [Suspect]
     Active Substance: MIRTAZAPINE
     Indication: SLEEP DISORDER
     Dosage: 15 [MG/D ]
     Route: 064
     Dates: start: 20190228, end: 20191113

REACTIONS (3)
  - Premature baby [Unknown]
  - Ventricular extrasystoles [Recovered/Resolved]
  - Foetal exposure during pregnancy [Unknown]

NARRATIVE: CASE EVENT DATE: 20190228
